FAERS Safety Report 24224586 (Version 1)
Quarter: 2024Q3

REPORT INFORMATION
  Report Type: Spontaneous
  Country: ES (occurrence: ES)
  Receive Date: 20240819
  Receipt Date: 20240819
  Transmission Date: 20241017
  Serious: Yes (Other)
  Sender: NOVARTIS
  Company Number: ES-002147023-NVSC2024ES166986

PATIENT
  Sex: Female

DRUGS (1)
  1. GILENYA [Suspect]
     Active Substance: FINGOLIMOD HYDROCHLORIDE
     Indication: Paternal exposure during pregnancy
     Dosage: UNK (EXPOSURE VIA PARTNER)
     Route: 050

REACTIONS (2)
  - Abortion spontaneous [Unknown]
  - Paternal exposure timing unspecified [Unknown]
